FAERS Safety Report 6659859-X (Version None)
Quarter: 2010Q1

REPORT INFORMATION
  Report Type: 
  Country: None (occurrence: None)
  Receive Date: 20100330
  Receipt Date: 20100330
  Transmission Date: 20100710
  Serious: No
  Sender: FDA-Public Use
  Company Number: None

PATIENT
  Sex: Male
  Weight: 83.3 kg

DRUGS (1)
  1. CYTARABINE [Suspect]
     Dosage: 37800 MG
     Dates: end: 20090214

REACTIONS (1)
  - PNEUMONIA VIRAL [None]
